FAERS Safety Report 8537122-X (Version None)
Quarter: 2012Q3

REPORT INFORMATION
  Report Type: 
  Country: None (occurrence: None)
  Receive Date: 20120725
  Receipt Date: 20120716
  Transmission Date: 20120928
  Serious: Yes (Hospitalization)
  Sender: FDA-Public Use
  Company Number: US-BAYER-2012-072681

PATIENT
  Age: 30 Year
  Sex: Female
  Weight: 124.6 kg

DRUGS (8)
  1. FASTIN [Concomitant]
     Dosage: 30 MG, TWICE DAILY
     Dates: start: 20061129
  2. SINGULAIR [Concomitant]
     Dosage: 10 MG, DAILY
     Dates: start: 20061129
  3. SARAFEM [Concomitant]
     Dosage: UNK, DAILY
     Route: 048
  4. VERSED [Concomitant]
     Dosage: UNK
  5. YASMIN [Suspect]
  6. PROZAC [Concomitant]
     Dosage: 20 MG, DAILY, 14 DAYS BEFORE MENSTRUAL CYCLE
     Route: 048
     Dates: start: 20061129
  7. FENTANYL [Concomitant]
     Dosage: UNK
  8. YASMIN [Suspect]
     Dosage: UNK

REACTIONS (2)
  - PULMONARY EMBOLISM [None]
  - DEEP VEIN THROMBOSIS [None]
